FAERS Safety Report 8357453-6 (Version None)
Quarter: 2012Q1

REPORT INFORMATION
  Report Type: 
  Country: None (occurrence: None)
  Receive Date: 20120315
  Receipt Date: 20110214
  Transmission Date: 20120608
  Serious: Yes (Other)
  Sender: FDA-Public Use
  Company Number: PHHY2011US07343

PATIENT
  Age: 45 Year
  Sex: Male
  Weight: 184 kg

DRUGS (2)
  1. AMPYRA [Concomitant]
  2. GILENYA [Suspect]
     Indication: RELAPSING-REMITTING MULTIPLE SCLEROSIS
     Dosage: 0.5 MG DAILY, ORAL
     Route: 048
     Dates: start: 20101223, end: 20110126

REACTIONS (1)
  - HERPES ZOSTER [None]
